FAERS Safety Report 6372167-X (Version None)
Quarter: 2009Q3

REPORT INFORMATION
  Report Type: 
  Country: None (occurrence: None)
  Receive Date: 20090917
  Receipt Date: 20090904
  Transmission Date: 20100115
  Serious: Yes (Hospitalization, Other)
  Sender: FDA-Public Use
  Company Number: ADR18062009(ARROW GENERICS LOG NO.: AG4790)

PATIENT
  Age: 54 Year
  Sex: Female

DRUGS (2)
  1. CITALOPRAM HYDROBROMIDE [Suspect]
     Dosage: 20 MG
     Route: 048
     Dates: start: 20030601
  2. PREMPAK-C [Concomitant]

REACTIONS (7)
  - ALCOHOL USE [None]
  - ANGLE CLOSURE GLAUCOMA [None]
  - DEPRESSED MOOD [None]
  - OVERDOSE [None]
  - RETINAL HAEMORRHAGE [None]
  - SUICIDAL IDEATION [None]
  - VITREOUS HAEMORRHAGE [None]
